FAERS Safety Report 10479441 (Version 1)
Quarter: 2014Q3

REPORT INFORMATION
  Report Type: Spontaneous
  Country: JP (occurrence: JP)
  Receive Date: 20140926
  Receipt Date: 20140926
  Transmission Date: 20150326
  Serious: Yes (Other)
  Sender: FDA-Public Use
  Company Number: PHHY2014JP101133

PATIENT

DRUGS (5)
  1. ZOMETA [Suspect]
     Active Substance: ZOLEDRONIC ACID
     Dosage: UNK UKN, UNK
     Dates: start: 200703
  2. AFINITOR [Suspect]
     Active Substance: EVEROLIMUS
     Indication: MALIGNANT NEOPLASM PROGRESSION
     Dosage: UNK UKN, UNK
     Dates: start: 201012
  3. ANASTROZOLE. [Suspect]
     Active Substance: ANASTROZOLE
     Dosage: UNK UKN, UNK
     Dates: start: 200703
  4. EXEMESTANE. [Concomitant]
     Active Substance: EXEMESTANE
     Dosage: UNK UKN, UNK
  5. FEMARA [Suspect]
     Active Substance: LETROZOLE
     Dosage: UNK UKN, UNK
     Dates: start: 200902

REACTIONS (7)
  - Anaemia [Unknown]
  - Rash [Unknown]
  - Blood creatinine increased [Unknown]
  - Stomatitis [Unknown]
  - Metastases to bone [Unknown]
  - Malignant neoplasm progression [Unknown]
  - Interstitial lung disease [Unknown]
